FAERS Safety Report 13700614 (Version 1)
Quarter: 2017Q2

REPORT INFORMATION
  Report Type: Spontaneous
  Country: AU (occurrence: AU)
  Receive Date: 20170629
  Receipt Date: 20170629
  Transmission Date: 20170830
  Serious: Yes (Hospitalization, Other)
  Sender: FDA-Public Use
  Company Number: AU-ROCHE-1955833

PATIENT
  Sex: Female

DRUGS (1)
  1. VALIUM [Suspect]
     Active Substance: DIAZEPAM
     Indication: PRODUCT USED FOR UNKNOWN INDICATION
     Dosage: STARTED IN JAN/FEB
     Route: 065

REACTIONS (6)
  - Heart rate increased [Unknown]
  - Vomiting [Unknown]
  - Withdrawal syndrome [Unknown]
  - Product tampering [Unknown]
  - Hyperhidrosis [Unknown]
  - Hypotension [Unknown]
